FAERS Safety Report 23401304 (Version 1)
Quarter: 2024Q1

REPORT INFORMATION
  Report Type: Spontaneous
  Country: BE (occurrence: BE)
  Receive Date: 20240115
  Receipt Date: 20240115
  Transmission Date: 20240410
  Serious: Yes (Other)
  Sender: FDA-Public Use
  Company Number: BE-SA-2023SA212629

PATIENT
  Age: 63 Year
  Sex: Male

DRUGS (6)
  1. LAPINE T-LYMPHOCYTE IMMUNE GLOBULIN [Suspect]
     Active Substance: LAPINE T-LYMPHOCYTE IMMUNE GLOBULIN
     Indication: Bone marrow conditioning regimen
     Route: 065
  2. CYCLOSPORINE [Suspect]
     Active Substance: CYCLOSPORINE
     Indication: Immunosuppression
     Route: 065
  3. FLUDARABINE PHOSPHATE [Suspect]
     Active Substance: FLUDARABINE PHOSPHATE
     Indication: Bone marrow conditioning regimen
     Route: 065
  4. MELPHALAN [Suspect]
     Active Substance: MELPHALAN
     Indication: Bone marrow conditioning regimen
     Route: 065
  5. SIROLIMUS [Suspect]
     Active Substance: SIROLIMUS
     Indication: Immunosuppression
     Dosage: UNK
     Route: 065
  6. LETERMOVIR [Concomitant]
     Active Substance: LETERMOVIR
     Indication: Antiviral prophylaxis
     Route: 065

REACTIONS (2)
  - Cytomegalovirus infection [Unknown]
  - Off label use [Unknown]
